FAERS Safety Report 10466618 (Version 2)
Quarter: 2014Q4

REPORT INFORMATION
  Report Type: Spontaneous
  Country: CH (occurrence: None)
  Receive Date: 20140918
  Receipt Date: 20141125
  Transmission Date: 20150528
  Serious: Yes (Congenital Anomaly)
  Sender: FDA-Public Use
  Company Number: 20140596

PATIENT
  Sex: Male
  Weight: 2.94 kg

DRUGS (1)
  1. FERINJECT [Suspect]
     Active Substance: FERRIC CARBOXYMALTOSE
     Indication: IRON DEFICIENCY ANAEMIA
     Route: 064
     Dates: start: 20140604, end: 20140604

REACTIONS (2)
  - Maternal drugs affecting foetus [None]
  - Polydactyly [None]
